FAERS Safety Report 20851401 (Version 1)
Quarter: 2022Q2

REPORT INFORMATION
  Report Type: Spontaneous
  Country: BG (occurrence: BG)
  Receive Date: 20220519
  Receipt Date: 20220519
  Transmission Date: 20220720
  Serious: Yes (Other)
  Sender: FDA-Public Use
  Company Number: BG-009507513-2205BGR004969

PATIENT
  Age: 74 Year
  Sex: Female

DRUGS (1)
  1. KEYTRUDA [Suspect]
     Active Substance: PEMBROLIZUMAB
     Dosage: UNK
     Dates: start: 201708

REACTIONS (6)
  - Histiocytosis [Unknown]
  - Tumour pseudoprogression [Unknown]
  - Malignant neoplasm progression [Unknown]
  - Lymphadenitis [Unknown]
  - Skin depigmentation [Unknown]
  - Vitiligo [Unknown]

NARRATIVE: CASE EVENT DATE: 20170101
